FAERS Safety Report 6261060-9 (Version None)
Quarter: 2009Q3

REPORT INFORMATION
  Report Type: 
  Country: None (occurrence: None)
  Receive Date: 20090707
  Receipt Date: 20090625
  Transmission Date: 20100115
  Serious: Yes (Other)
  Sender: FDA-Public Use
  Company Number: WAES 0906USA05254

PATIENT
  Age: 52 Year
  Sex: Male
  Weight: 136.5327 kg

DRUGS (2)
  1. ZOLINZA [Suspect]
     Indication: RECTAL CANCER
     Dosage: 300 MG/DAILY/PO
     Route: 048
     Dates: start: 20090528
  2. VELCADE [Suspect]
     Indication: RECTAL CANCER
     Dosage: 1.3 MG/M[2]/IV
     Route: 042
     Dates: start: 20090528, end: 20090601

REACTIONS (1)
  - HYPONATRAEMIA [None]
